FAERS Safety Report 5743620-4 (Version None)
Quarter: 2008Q2

REPORT INFORMATION
  Report Type: 
  Country: None (occurrence: None)
  Receive Date: 20080516
  Receipt Date: 20080514
  Transmission Date: 20081010
  Serious: Yes (Hospitalization)
  Sender: FDA-Public Use
  Company Number: 2008SP008987

PATIENT
  Age: 74 Year
  Sex: Male

DRUGS (2)
  1. PEGATRON (PEGINTERFERON ALFA-2B W/RIBAVIRIN) (PEGYLATED INTERFERON ALF [Suspect]
     Indication: HEPATITIS C
     Dosage: 100 MCG,QW;SC;PO
     Route: 058
     Dates: start: 20080510
  2. PEGATRON (PEGINTERFERON ALFA-2B W/RIBAVIRIN) (PEGYLATED INTERFERON ALF [Suspect]
     Dosage: 100 MG;QD;PO
     Route: 048
     Dates: start: 20080510

REACTIONS (3)
  - CHEST PAIN [None]
  - HYPERTENSION [None]
  - VISION BLURRED [None]
